FAERS Safety Report 7736846-1 (Version None)
Quarter: 2011Q3

REPORT INFORMATION
  Report Type: 
  Country: None (occurrence: None)
  Receive Date: 20110908
  Receipt Date: 20110908
  Transmission Date: 20111222
  Serious: Yes (Life-Threatening, Hospitalization, Disabling, Other)
  Sender: FDA-Public Use
  Company Number: None

PATIENT
  Age: 55 Year
  Sex: Male
  Weight: 79.378 kg

DRUGS (1)
  1. DARVOCET-N 100 [Suspect]
     Indication: PAIN
     Dosage: 1-2
     Route: 048
     Dates: start: 20040212, end: 20100810

REACTIONS (2)
  - THROMBOSIS IN DEVICE [None]
  - MYOCARDIAL INFARCTION [None]
